FAERS Safety Report 16635383 (Version 1)
Quarter: 2019Q3

REPORT INFORMATION
  Report Type: Spontaneous
  Country: FR (occurrence: FR)
  Receive Date: 20190726
  Receipt Date: 20190726
  Transmission Date: 20191004
  Serious: Yes (Other)
  Sender: FDA-Public Use
  Company Number: FR-ASTRAZENECA-2019SF05725

PATIENT
  Age: 58 Year
  Sex: Female

DRUGS (1)
  1. LYNPARZA [Suspect]
     Active Substance: OLAPARIB
     Indication: FULL BLOOD COUNT ABNORMAL
     Route: 048
     Dates: start: 2018, end: 201906

REACTIONS (2)
  - Disease recurrence [Unknown]
  - Disease progression [Unknown]
